FAERS Safety Report 6537399-6 (Version None)
Quarter: 2010Q1

REPORT INFORMATION
  Report Type: 
  Country: None (occurrence: None)
  Receive Date: 20100110
  Receipt Date: 20091222
  Transmission Date: 20100710
  Serious: Yes (Hospitalization)
  Sender: FDA-Public Use
  Company Number: 220006N09DEU

PATIENT
  Age: 7 Year
  Sex: Male
  Weight: 27 kg

DRUGS (2)
  1. SAIZEN [Suspect]
     Indication: BLOOD GROWTH HORMONE DECREASED
     Dosage: 0.58 MG, 1 IN 1 DAYS, SUBCUTANEOUS; 0.58 MG, 1 IN 1 DAYS, SUBCUTANEOUS
     Route: 058
     Dates: start: 20060123, end: 20070404
  2. SAIZEN [Suspect]
     Indication: BLOOD GROWTH HORMONE DECREASED
     Dosage: 0.58 MG, 1 IN 1 DAYS, SUBCUTANEOUS; 0.58 MG, 1 IN 1 DAYS, SUBCUTANEOUS
     Route: 058
     Dates: start: 20071120, end: 20080515

REACTIONS (1)
  - SYNOVITIS [None]
